FAERS Safety Report 10755124 (Version 1)
Quarter: 2015Q1

REPORT INFORMATION
  Report Type: Spontaneous
  Country: US (occurrence: None)
  Receive Date: 20150123
  Receipt Date: 20150123
  Transmission Date: 20150721
  Serious: Yes (Other)
  Sender: FDA-Public Use
  Company Number: TAP2009Q00073

PATIENT
  Sex: Female

DRUGS (1)
  1. PREVACID SOLUTAB [Suspect]
     Active Substance: LANSOPRAZOLE
     Indication: GASTROOESOPHAGEAL REFLUX DISEASE
     Route: 048
     Dates: start: 2001, end: 2001

REACTIONS (6)
  - Wheezing [None]
  - Hypersensitivity [None]
  - Urticaria [None]
  - Documented hypersensitivity to administered product [None]
  - Throat tightness [None]
  - Pruritus [None]
